FAERS Safety Report 17203125 (Version 1)
Quarter: 2019Q4

REPORT INFORMATION
  Report Type: Spontaneous
  Country: US (occurrence: US)
  Receive Date: 20191226
  Receipt Date: 20191226
  Transmission Date: 20200122
  Serious: Yes (Hospitalization, Other)
  Sender: FDA-Public Use
  Company Number: US-ELI_LILLY_AND_COMPANY-US201912011590

PATIENT
  Age: 77 Year
  Sex: Male

DRUGS (7)
  1. ELIQUIS [Suspect]
     Active Substance: APIXABAN
     Dosage: 2.5 UNK
     Route: 065
  2. HUMULIN 70/30 [Suspect]
     Active Substance: INSULIN HUMAN
     Dosage: 10 WITH 3RD TUBE FEEDING (OUT OF 4)
     Route: 058
  3. HUMULIN 70/30 [Suspect]
     Active Substance: INSULIN HUMAN
     Dosage: 10 WITH 3RD TUBE FEEDING (OUT OF 4)
     Route: 058
     Dates: start: 2016
  4. AMARYL [Concomitant]
     Active Substance: GLIMEPIRIDE
     Indication: TYPE 2 DIABETES MELLITUS
     Dosage: 4 MG, DAILY
  5. HUMULIN 70/30 [Suspect]
     Active Substance: INSULIN HUMAN
     Indication: TYPE 2 DIABETES MELLITUS
     Dosage: 10 U, DAILY
     Route: 058
     Dates: start: 2016
  6. HUMULIN 70/30 [Suspect]
     Active Substance: INSULIN HUMAN
     Dosage: 10 U, DAILY
     Route: 058
  7. ELIQUIS [Suspect]
     Active Substance: APIXABAN
     Indication: PRODUCT USED FOR UNKNOWN INDICATION
     Dosage: 5 MG, DAILY
     Route: 065

REACTIONS (10)
  - Renal failure [Unknown]
  - Upper respiratory fungal infection [Unknown]
  - Cardiac failure congestive [Unknown]
  - Prostatomegaly [Unknown]
  - Cardiovascular disorder [Unknown]
  - Fall [Unknown]
  - Oesophageal disorder [Unknown]
  - Pneumonia [Unknown]
  - Pharyngeal haemorrhage [Recovered/Resolved]
  - Contusion [Not Recovered/Not Resolved]

NARRATIVE: CASE EVENT DATE: 2017
